FAERS Safety Report 21714481 (Version 1)
Quarter: 2022Q4

REPORT INFORMATION
  Report Type: Spontaneous
  Country: NO (occurrence: NO)
  Receive Date: 20221212
  Receipt Date: 20221212
  Transmission Date: 20230112
  Serious: Yes (Other)
  Sender: FDA-Public Use
  Company Number: NO-NOMAADVRE-PASRAPP-2022-Vrbw5m

PATIENT
  Age: 77 Year
  Sex: Female
  Weight: 92 kg

DRUGS (4)
  1. NEURONTIN [Suspect]
     Active Substance: GABAPENTIN
     Indication: Pain
     Dosage: 300 MILLIGRAM, Q8H
     Route: 065
     Dates: start: 202201, end: 202203
  2. CANDESARTAN [Concomitant]
     Active Substance: CANDESARTAN
     Indication: Hypertension
     Dosage: 32 MILLIGRAM, QD
     Route: 065
     Dates: start: 202104
  3. ACETAMINOPHEN [Concomitant]
     Active Substance: ACETAMINOPHEN
     Indication: Pain
     Dosage: 1 GRAM, 1 G X 2-3 PER DAY
     Route: 065
     Dates: start: 202106
  4. CALSIUM [Concomitant]
     Dosage: UNK
     Route: 065

REACTIONS (7)
  - Suicidal ideation [Recovered/Resolved]
  - Muscle spasms [Recovered/Resolved]
  - Trismus [Recovered/Resolved]
  - Hyperphagia [Recovered/Resolved]
  - Hunger [Recovered/Resolved]
  - Depressed mood [Recovered/Resolved]
  - Muscle twitching [Recovered/Resolved]

NARRATIVE: CASE EVENT DATE: 20220101
